FAERS Safety Report 4997094-1 (Version None)
Quarter: 2006Q2

REPORT INFORMATION
  Report Type: 
  Country: None (occurrence: None)
  Receive Date: 20060509
  Receipt Date: 20060124
  Transmission Date: 20061013
  Serious: Yes (Death)
  Sender: FDA-Public Use
  Company Number: JP-ROCHE-433735

PATIENT
  Age: 67 Year
  Sex: Female
  Weight: 48 kg

DRUGS (9)
  1. PEGASYS [Suspect]
     Indication: HEPATITIS C
     Route: 058
     Dates: start: 20050215
  2. PEGASYS [Suspect]
     Route: 058
     Dates: end: 20060115
  3. URSO [Concomitant]
     Route: 048
     Dates: start: 19990902
  4. LAC-B [Concomitant]
     Route: 048
     Dates: start: 19990902
  5. TAKEPRON [Concomitant]
     Route: 048
     Dates: start: 20020305
  6. MEVALOTIN [Concomitant]
     Route: 048
     Dates: start: 20030109
  7. GLIMICRON [Concomitant]
     Route: 048
     Dates: start: 20050112
  8. MERCAZOLE [Concomitant]
     Route: 048
     Dates: start: 20051017, end: 20051031
  9. THYRADIN [Concomitant]
     Route: 048
     Dates: start: 20051205

REACTIONS (1)
  - CEREBRAL HAEMORRHAGE [None]
